FAERS Safety Report 22173385 (Version 1)
Quarter: 2023Q2

REPORT INFORMATION
  Report Type: Spontaneous
  Country: US (occurrence: US)
  Receive Date: 20230404
  Receipt Date: 20230404
  Transmission Date: 20230721
  Serious: Yes (Death, Hospitalization, Other)
  Sender: FDA-Public Use
  Company Number: US-GILEAD-2023-0621929

PATIENT
  Sex: Female

DRUGS (1)
  1. YESCARTA [Suspect]
     Active Substance: AXICABTAGENE CILOLEUCEL
     Indication: Product used for unknown indication
     Dosage: UNK
     Route: 065
     Dates: start: 20230206

REACTIONS (20)
  - Death [Fatal]
  - Hyporesponsive to stimuli [Not Recovered/Not Resolved]
  - Fall [Recovered/Resolved]
  - Behaviour disorder [Not Recovered/Not Resolved]
  - Hyporesponsive to stimuli [Not Recovered/Not Resolved]
  - Loss of consciousness [Recovered/Resolved]
  - Depressed level of consciousness [Not Recovered/Not Resolved]
  - Neurotoxicity [Recovered/Resolved]
  - Neurotoxicity [Recovered/Resolved]
  - Aggression [Not Recovered/Not Resolved]
  - Aggression [Recovered/Resolved]
  - Fall [Recovered/Resolved]
  - Speech disorder [Not Recovered/Not Resolved]
  - Impulsive behaviour [Not Recovered/Not Resolved]
  - Disorientation [Not Recovered/Not Resolved]
  - Agitation [Not Recovered/Not Resolved]
  - Agitation [Not Recovered/Not Resolved]
  - Dysgraphia [Not Recovered/Not Resolved]
  - Lethargy [Recovering/Resolving]
  - Lethargy [Not Recovered/Not Resolved]

NARRATIVE: CASE EVENT DATE: 20230211
